FAERS Safety Report 10285739 (Version 3)
Quarter: 2014Q4

REPORT INFORMATION
  Report Type: Spontaneous
  Country: CA (occurrence: CA)
  Receive Date: 20140709
  Receipt Date: 20141030
  Transmission Date: 20150528
  Serious: Yes (Hospitalization, Other)
  Sender: FDA-Public Use
  Company Number: CA-ROCHE-1431484

PATIENT
  Age: 57 Year
  Sex: Male

DRUGS (7)
  1. XOLAIR [Suspect]
     Active Substance: OMALIZUMAB
     Route: 058
     Dates: start: 20140804, end: 20140804
  2. XOLAIR [Suspect]
     Active Substance: OMALIZUMAB
     Indication: ASTHMA
     Route: 058
     Dates: start: 20140321
  3. SALBUTAMOL [Concomitant]
     Active Substance: ALBUTEROL
  4. VENTOLIN [Concomitant]
     Active Substance: ALBUTEROL SULFATE
     Route: 065
  5. XOLAIR [Suspect]
     Active Substance: OMALIZUMAB
     Route: 058
     Dates: start: 20140623, end: 20140623
  6. XOLAIR [Suspect]
     Active Substance: OMALIZUMAB
     Route: 065
     Dates: start: 20140702, end: 20140702
  7. ADVAIR HFA [Concomitant]
     Active Substance: FLUTICASONE PROPIONATE\SALMETEROL XINAFOATE

REACTIONS (40)
  - Rectal haemorrhage [Unknown]
  - Normochromic normocytic anaemia [Unknown]
  - Sjogren^s syndrome [Unknown]
  - Lymphocytosis [Unknown]
  - Red cell distribution width increased [Unknown]
  - Blood immunoglobulin E increased [Not Recovered/Not Resolved]
  - Polychromasia [Unknown]
  - Haematocrit decreased [Not Recovered/Not Resolved]
  - Urine albumin/creatinine ratio increased [Unknown]
  - C-reactive protein increased [Unknown]
  - Activated partial thromboplastin time prolonged [Unknown]
  - Scleroderma [Unknown]
  - Bacterial test positive [Unknown]
  - Contusion [Unknown]
  - Wheezing [Unknown]
  - Mixed connective tissue disease [Unknown]
  - Red blood cell count decreased [Not Recovered/Not Resolved]
  - Eosinophilia [Unknown]
  - Antinuclear antibody positive [Not Recovered/Not Resolved]
  - Blood glucose increased [Not Recovered/Not Resolved]
  - Oedema peripheral [Unknown]
  - Dyspnoea exertional [Unknown]
  - Chest pain [Unknown]
  - Haematuria [Unknown]
  - Monocytosis [Unknown]
  - Blood creatinine decreased [Not Recovered/Not Resolved]
  - Platelet count increased [Unknown]
  - Red blood cell count increased [Unknown]
  - Blood albumin increased [Unknown]
  - Flank pain [Recovered/Resolved]
  - Haemorrhage [Unknown]
  - Mean cell haemoglobin increased [Not Recovered/Not Resolved]
  - Frequent bowel movements [Unknown]
  - Obesity [Unknown]
  - Pallor [Unknown]
  - Faeces hard [Unknown]
  - Anaemia [Unknown]
  - Haematochezia [Unknown]
  - Stomatocytes present [Unknown]
  - Central obesity [Unknown]

NARRATIVE: CASE EVENT DATE: 20140528
